FAERS Safety Report 4631635-9 (Version None)
Quarter: 2005Q2

REPORT INFORMATION
  Report Type: 
  Country: None (occurrence: None)
  Receive Date: 20050407
  Receipt Date: 20050329
  Transmission Date: 20051028
  Serious: Yes (Hospitalization)
  Sender: FDA-Public Use
  Company Number: VISP-NO-0503S-0148

PATIENT
  Age: 66 Year
  Sex: Male

DRUGS (1)
  1. VISIPAQUE [Suspect]
     Indication: COLON CANCER
     Dosage: 120 ML, SINGLE DOSE, I.V.
     Route: 042
     Dates: start: 20050307, end: 20050307

REACTIONS (2)
  - ABDOMINAL PAIN [None]
  - PYREXIA [None]
